FAERS Safety Report 8856419 (Version 1)
Quarter: 2012Q4

REPORT INFORMATION
  Report Type: Spontaneous
  Country: DK (occurrence: None)
  Receive Date: 20121018
  Receipt Date: 20121018
  Transmission Date: 20130627
  Serious: Yes (Congenital Anomaly)
  Sender: FDA-Public Use
  Company Number: 2012MA012226

PATIENT

DRUGS (3)
  1. LORAZEPAM [Suspect]
     Indication: PANIC ATTACK
     Route: 064
     Dates: start: 20120201, end: 20120228
  2. ANAFRANIL [Suspect]
     Indication: DEPRESSION
     Route: 064
     Dates: start: 20081021, end: 20121002
  3. TRILAFON [Suspect]
     Indication: NEUROSIS NOS
     Route: 064
     Dates: start: 20111011, end: 20121002

REACTIONS (2)
  - Cleft palate [None]
  - Maternal drugs affecting foetus [None]
